FAERS Safety Report 8010660-4 (Version None)
Quarter: 2011Q4

REPORT INFORMATION
  Report Type: 
  Country: None (occurrence: None)
  Receive Date: 20111228
  Receipt Date: 20111130
  Transmission Date: 20120403
  Serious: Yes (Death, Hospitalization, Other)
  Sender: FDA-Public Use
  Company Number: JP-SANOFI-AVENTIS-2011SA042392

PATIENT
  Age: 23 Year
  Sex: Male
  Weight: 53 kg

DRUGS (36)
  1. THYMOGLOBULIN [Suspect]
     Indication: BONE MARROW CONDITIONING REGIMEN
     Route: 065
     Dates: start: 20100210, end: 20100211
  2. FLUDARABINE PHOSPHATE [Suspect]
     Indication: BONE MARROW CONDITIONING REGIMEN
     Route: 048
     Dates: start: 20100204, end: 20100208
  3. PIRARUBICIN HYDROCHLORIDE [Concomitant]
  4. MICAFUNGIN SODIUM [Concomitant]
     Dates: start: 20100204
  5. METHOTREXATE [Concomitant]
     Dates: start: 20100214, end: 20100218
  6. POLYMYXIN B SULFATE [Concomitant]
     Dates: start: 20100204, end: 20100305
  7. ETOPOSIDE [Concomitant]
     Dates: start: 20090803, end: 20090926
  8. VINCRISTINE SULFATE [Concomitant]
     Dates: start: 20091026, end: 20091121
  9. METHYLPREDNISOLONE SODIUM SUCCINATE [Concomitant]
     Dates: start: 20100210, end: 20100211
  10. HYDROXYZINE HCL [Concomitant]
     Dates: start: 20100210, end: 20100806
  11. ETHYL ICOSAPENTATE [Concomitant]
     Dates: start: 20100205, end: 20100430
  12. CARBOPLATIN [Concomitant]
     Dates: start: 20090805, end: 20090926
  13. GLUTATHIONE [Concomitant]
     Dates: start: 20100204, end: 20100401
  14. MELPHALAN HYDROCHLORIDE [Concomitant]
     Dates: start: 20100209, end: 20100210
  15. ZOVIRAX [Concomitant]
     Dates: start: 20100205, end: 20100321
  16. PIPERACILLIN SODIUM [Concomitant]
     Dates: start: 20100204, end: 20100216
  17. SULFAMETHOPRIM [Concomitant]
     Dates: start: 20100225
  18. IFOSFAMIDE [Concomitant]
     Dates: start: 20090803, end: 20090926
  19. ALL OTHER THERAPEUTIC PRODUCTS [Concomitant]
     Dates: start: 20100204, end: 20100401
  20. FAMOTIDINE [Concomitant]
     Dates: start: 20100204, end: 20100303
  21. GRANISETRON HCL [Concomitant]
     Dates: start: 20100204, end: 20100314
  22. VANCOMYCIN HCL [Concomitant]
     Dates: start: 20100204, end: 20100305
  23. FLUCONAL [Concomitant]
     Dates: start: 20100205, end: 20100402
  24. PREDNISOLONE [Concomitant]
     Indication: GRAFT VERSUS HOST DISEASE IN SKIN
     Dates: start: 20100225
  25. CYCLOPHOSPHAMIDE [Concomitant]
     Dates: start: 20091026, end: 20091121
  26. HYDROCORTISONE SODIUM SUCCINATE [Concomitant]
     Dates: start: 20100204, end: 20100212
  27. DALTEPARIN SODIUM [Concomitant]
     Dates: start: 20100204, end: 20100330
  28. TACROLIMUS [Concomitant]
     Dates: start: 20100211, end: 20100623
  29. PREDNISOLONE ACETATE [Concomitant]
     Dates: start: 20100212, end: 20100223
  30. FILGRASTIM [Concomitant]
     Dates: start: 20100213, end: 20100226
  31. SULFAMETHOPRIM [Concomitant]
     Dates: start: 20100225
  32. ITRACONAZOL A [Concomitant]
     Dates: start: 20100401
  33. PLATELETS [Concomitant]
     Dates: start: 20100214, end: 20100808
  34. IMIPEM [Concomitant]
     Dates: start: 20100217, end: 20100222
  35. CEFTRIAXONE [Concomitant]
     Dates: start: 20100226, end: 20100807
  36. URSODIOL [Concomitant]
     Dates: start: 20100205, end: 20100430

REACTIONS (32)
  - HYPONATRAEMIA [None]
  - ENTEROCOCCAL INFECTION [None]
  - PANCREATITIS [None]
  - PNEUMONIA [None]
  - MELAENA [None]
  - RENAL IMPAIRMENT [None]
  - RADIATION PNEUMONITIS [None]
  - URINARY RETENTION [None]
  - INFECTIOUS PERITONITIS [None]
  - ENCEPHALITIS HERPES [None]
  - BONE MARROW FAILURE [None]
  - LOBAR PNEUMONIA [None]
  - PSEUDOMONAS INFECTION [None]
  - ACUTE GRAFT VERSUS HOST DISEASE IN INTESTINE [None]
  - NAUSEA [None]
  - INSOMNIA [None]
  - HEPATIC FUNCTION ABNORMAL [None]
  - CHEST WALL MASS [None]
  - LUNG NEOPLASM [None]
  - PAIN [None]
  - GRAFT VERSUS HOST DISEASE IN INTESTINE [None]
  - DECREASED APPETITE [None]
  - ACUTE GRAFT VERSUS HOST DISEASE IN SKIN [None]
  - DIARRHOEA [None]
  - DEPRESSION [None]
  - GRAFT VERSUS HOST DISEASE [None]
  - EWING'S SARCOMA [None]
  - FEBRILE NEUTROPENIA [None]
  - GRAFT VERSUS HOST DISEASE IN SKIN [None]
  - MEMORY IMPAIRMENT [None]
  - INFECTION [None]
  - CANDIDIASIS [None]
